FAERS Safety Report 6677250-7 (Version None)
Quarter: 2010Q2

REPORT INFORMATION
  Report Type: 
  Country: None (occurrence: None)
  Receive Date: 20100408
  Receipt Date: 20100408
  Transmission Date: 20101027
  Serious: No
  Sender: FDA-Public Use
  Company Number: None

PATIENT
  Age: 59 Year
  Sex: Female
  Weight: 59 kg

DRUGS (10)
  1. STADOL [Suspect]
     Indication: PAIN
     Dosage: 1 MG Q 4 PRN IV X1
     Route: 042
     Dates: start: 20100306
  2. STADOL [Suspect]
     Indication: PRURITUS
     Dosage: 1 MG Q 4 PRN IV X1
     Route: 042
     Dates: start: 20100306
  3. MINOCIN [Concomitant]
  4. HYZAAR [Concomitant]
  5. PRILOSEC [Concomitant]
  6. DILAUDID [Concomitant]
  7. ATIVAN [Concomitant]
  8. NORCO [Concomitant]
  9. TYLENOL-500 [Concomitant]
  10. ANCEF [Concomitant]

REACTIONS (4)
  - BLOOD PRESSURE INCREASED [None]
  - CHILLS [None]
  - DIZZINESS [None]
  - HEART RATE INCREASED [None]
